FAERS Safety Report 10765438 (Version 1)
Quarter: 2015Q1

REPORT INFORMATION
  Report Type: Report from Study
  Country: AT (occurrence: AT)
  Receive Date: 20150205
  Receipt Date: 20150205
  Transmission Date: 20150721
  Serious: Yes (Death)
  Sender: FDA-Public Use
  Company Number: AT-INCYTE CORPORATION-2015IN000281

PATIENT
  Sex: Female
  Weight: 75 kg

DRUGS (1)
  1. JAKAFI [Suspect]
     Active Substance: RUXOLITINIB
     Indication: MYELOFIBROSIS
     Dosage: 30 MG, QD
     Route: 048
     Dates: start: 20130322

REACTIONS (5)
  - Sepsis [Fatal]
  - Blast cell crisis [Fatal]
  - Renal failure [Fatal]
  - White blood cell count increased [Fatal]
  - Pneumonia [Fatal]
